FAERS Safety Report 5140093-X (Version None)
Quarter: 2006Q4

REPORT INFORMATION
  Report Type: 
  Country: None (occurrence: None)
  Receive Date: 20061024
  Receipt Date: 20061005
  Transmission Date: 20070319
  Serious: Yes (Hospitalization)
  Sender: FDA-Public Use
  Company Number: US200609002101

PATIENT
  Age: 52 Year
  Sex: Male
  Weight: 102 kg

DRUGS (4)
  1. ZYPREXA [Suspect]
     Dates: start: 20050301
  2. ARIPIPRAZOLE (ARIPIPRAZOLE) [Concomitant]
  3. QUETIAPINE FUMARATE [Concomitant]
  4. EFFEXOR [Concomitant]

REACTIONS (3)
  - CARDIAC DISORDER [None]
  - DIABETES MELLITUS [None]
  - STENT PLACEMENT [None]
